FAERS Safety Report 19879876 (Version 1)
Quarter: 2021Q3

REPORT INFORMATION
  Report Type: Other
  Country: US (occurrence: US)
  Receive Date: 20210924
  Receipt Date: 20210924
  Transmission Date: 20211014
  Serious: Yes (Hospitalization, Other)
  Sender: FDA-Public Use
  Company Number: US-ROCHE-2717575

PATIENT
  Age: 69 Year
  Sex: Male
  Weight: 97.61 kg

DRUGS (18)
  1. METOPROLOL. [Concomitant]
     Active Substance: METOPROLOL
  2. VITAMIN D3 [Concomitant]
     Active Substance: CHOLECALCIFEROL
  3. ROPINIROLE. [Concomitant]
     Active Substance: ROPINIROLE
  4. GABAPENTIN. [Concomitant]
     Active Substance: GABAPENTIN
  5. DIGOXIN. [Concomitant]
     Active Substance: DIGOXIN
  6. BENZONATATE. [Concomitant]
     Active Substance: BENZONATATE
  7. OCREVUS [Suspect]
     Active Substance: OCRELIZUMAB
     Indication: RELAPSING MULTIPLE SCLEROSIS
     Dosage: PRESCRIBED WITH 300 MG DAY 1 THEN 300 MG DAY 15 AND LATER 600 MG EVERY 6 MONTHS?DATE OF TREATMENT: 2
     Route: 042
     Dates: start: 20191115
  8. LISINOPRIL. [Concomitant]
     Active Substance: LISINOPRIL
  9. CITALOPRAM [Concomitant]
     Active Substance: CITALOPRAM HYDROBROMIDE
  10. CENTRUM SILVER ADULTS 50+ [Concomitant]
     Active Substance: MINERALS\VITAMINS
  11. VITAMIN B12 [Concomitant]
     Active Substance: CYANOCOBALAMIN
  12. ELIQUIS [Concomitant]
     Active Substance: APIXABAN
     Indication: CORONARY ARTERY DISEASE
  13. LOVASTATIN. [Concomitant]
     Active Substance: LOVASTATIN
  14. TAMSULOSIN [Concomitant]
     Active Substance: TAMSULOSIN
  15. OCREVUS [Suspect]
     Active Substance: OCRELIZUMAB
     Dosage: (PRESCRIBED AS 300 MG ON DAY 1 AND DAY 15 AND 6?? MG ONCE IN 6 MONTHS)
     Route: 042
     Dates: start: 2015, end: 2018
  16. COPAXONE [Suspect]
     Active Substance: GLATIRAMER ACETATE
     Indication: MULTIPLE SCLEROSIS
     Route: 065
  17. TYLENOL [Concomitant]
     Active Substance: ACETAMINOPHEN
  18. BREO ELLIPTA [Concomitant]
     Active Substance: FLUTICASONE FUROATE\VILANTEROL TRIFENATATE

REACTIONS (11)
  - COVID-19 [Recovered/Resolved]
  - Therapeutic response shortened [Unknown]
  - Amnesia [Unknown]
  - Paralysis [Unknown]
  - Dysgraphia [Not Recovered/Not Resolved]
  - Coronary artery disease [Not Recovered/Not Resolved]
  - Muscular weakness [Unknown]
  - Cerebrovascular accident [Not Recovered/Not Resolved]
  - Haemorrhage [Unknown]
  - Hypoaesthesia [Unknown]
  - Ill-defined disorder [Unknown]

NARRATIVE: CASE EVENT DATE: 2018
